FAERS Safety Report 11731778 (Version 1)
Quarter: 2015Q4

REPORT INFORMATION
  Report Type: Spontaneous
  Country: US (occurrence: US)
  Receive Date: 20151110
  Receipt Date: 20151110
  Transmission Date: 20160304
  Serious: No
  Sender: FDA-Public Use
  Company Number: US-ELI_LILLY_AND_COMPANY-US201112005403

PATIENT
  Age: 88 Year
  Sex: Female

DRUGS (3)
  1. FORTEO [Suspect]
     Active Substance: TERIPARATIDE
     Indication: OSTEOPOROSIS
     Dosage: 20 UG, QD
     Dates: start: 20111129
  2. FORTEO [Suspect]
     Active Substance: TERIPARATIDE
     Dosage: 20 UG, QD
  3. FORTEO [Suspect]
     Active Substance: TERIPARATIDE
     Dosage: 20 UG, QD
     Dates: start: 201202

REACTIONS (12)
  - Musculoskeletal chest pain [Unknown]
  - Flank pain [Not Recovered/Not Resolved]
  - Flank pain [Unknown]
  - Arthralgia [Unknown]
  - Pain [Unknown]
  - Eye pain [Unknown]
  - Intentional product misuse [Unknown]
  - Joint swelling [Unknown]
  - Drug dose omission [Recovered/Resolved]
  - Visual impairment [Unknown]
  - Discomfort [Unknown]
  - Drug dose omission [Recovered/Resolved]

NARRATIVE: CASE EVENT DATE: 201112
